FAERS Safety Report 25152026 (Version 1)
Quarter: 2025Q2

REPORT INFORMATION
  Report Type: Spontaneous
  Country: US (occurrence: US)
  Receive Date: 20250402
  Receipt Date: 20250402
  Transmission Date: 20250717
  Serious: Yes (Other)
  Sender: BRISTOL MYERS SQUIBB
  Company Number: US-BRISTOL-MYERS SQUIBB COMPANY-2025-044451

PATIENT
  Age: 84 Year
  Sex: Male
  Weight: 80.29 kg

DRUGS (1)
  1. REVLIMID [Suspect]
     Active Substance: LENALIDOMIDE
     Indication: Follicle centre lymphoma diffuse small cell lymphoma
     Dosage: DAILY FOR 3 WEEKS ON, 1 WEEK OFF
     Route: 048

REACTIONS (1)
  - Cough [Recovering/Resolving]
